FAERS Safety Report 19991134 (Version 1)
Quarter: 2021Q4

REPORT INFORMATION
  Report Type: Spontaneous
  Country: FR (occurrence: FR)
  Receive Date: 20211025
  Receipt Date: 20211025
  Transmission Date: 20220303
  Serious: Yes (Other)
  Sender: FDA-Public Use
  Company Number: None

PATIENT
  Age: 55 Year
  Sex: Female

DRUGS (3)
  1. NOMEGESTROL ACETATE [Suspect]
     Active Substance: NOMEGESTROL ACETATE
     Indication: Oral contraception
     Route: 048
     Dates: start: 200808, end: 201707
  2. ESTRADIOL [Suspect]
     Active Substance: ESTRADIOL
     Indication: Product substitution
     Route: 062
     Dates: start: 201707, end: 201803
  3. CYPROTERONE ACETATE [Suspect]
     Active Substance: CYPROTERONE ACETATE
     Indication: Abdominal pain
     Route: 048
     Dates: start: 199807, end: 199905

REACTIONS (1)
  - Meningioma [Not Recovered/Not Resolved]

NARRATIVE: CASE EVENT DATE: 20180101
